FAERS Safety Report 15826791 (Version 1)
Quarter: 2019Q1

REPORT INFORMATION
  Report Type: Spontaneous
  Country: ID (occurrence: ID)
  Receive Date: 20190115
  Receipt Date: 20190115
  Transmission Date: 20190417
  Serious: Yes (Hospitalization)
  Sender: FDA-Public Use
  Company Number: ID-DSJP-DSJ-2019-100538

PATIENT

DRUGS (1)
  1. EDOXABAN [Suspect]
     Active Substance: EDOXABAN TOSYLATE
     Indication: FIBRIN D DIMER INCREASED
     Dosage: 30 MG, DAY
     Route: 048
     Dates: start: 201812

REACTIONS (1)
  - Stridor [Recovering/Resolving]

NARRATIVE: CASE EVENT DATE: 201812
